FAERS Safety Report 5457085-3 (Version None)
Quarter: 2007Q3

REPORT INFORMATION
  Report Type: 
  Country: None (occurrence: None)
  Receive Date: 20070918
  Receipt Date: 20070906
  Transmission Date: 20080115
  Serious: Yes (Other)
  Sender: FDA-Public Use
  Company Number: GB-PFIZER INC-2007075593

PATIENT
  Sex: Male

DRUGS (1)
  1. PREGABALIN [Suspect]
     Indication: DIABETIC NEUROPATHY

REACTIONS (4)
  - BLOOD ALBUMIN INCREASED [None]
  - C-REACTIVE PROTEIN [None]
  - C-REACTIVE PROTEIN INCREASED [None]
  - PETIT MAL EPILEPSY [None]
